FAERS Safety Report 19571973 (Version 1)
Quarter: 2021Q3

REPORT INFORMATION
  Report Type: Spontaneous
  Country: GB (occurrence: GB)
  Receive Date: 20210716
  Receipt Date: 20210716
  Transmission Date: 20211014
  Serious: Yes (Disabling, Other)
  Sender: FDA-Public Use
  Company Number: GB-ALLERGAN-2125665US

PATIENT
  Sex: Female
  Weight: 55 kg

DRUGS (4)
  1. CITALOPRAM HYDROBROMIDE ? BP [Suspect]
     Active Substance: CITALOPRAM HYDROBROMIDE
     Indication: DEPRESSION SUICIDAL
     Dosage: 20 MG
     Route: 048
     Dates: start: 20210611
  2. VALERIAN [VALERIANA OFFICINALIS] [Concomitant]
     Active Substance: VALERIAN
     Indication: ILL-DEFINED DISORDER
     Route: 065
  3. HOP STROBILE [Concomitant]
     Indication: ILL-DEFINED DISORDER
     Route: 065
  4. PASSION FLOWER [Concomitant]
     Active Substance: HERBALS\HOMEOPATHICS\PASSIFLORA INCARNATA FLOWER
     Indication: ILL-DEFINED DISORDER
     Route: 065

REACTIONS (9)
  - Tremor [Recovered/Resolved with Sequelae]
  - Affect lability [Not Recovered/Not Resolved]
  - Insomnia [Recovered/Resolved]
  - Yawning [Recovering/Resolving]
  - Fatigue [Not Recovered/Not Resolved]
  - Somnolence [Not Recovered/Not Resolved]
  - Abnormal dreams [Not Recovered/Not Resolved]
  - Restlessness [Not Recovered/Not Resolved]
  - Suicidal ideation [Not Recovered/Not Resolved]

NARRATIVE: CASE EVENT DATE: 20210611
